FAERS Safety Report 4610205-2 (Version None)
Quarter: 2005Q1

REPORT INFORMATION
  Report Type: 
  Country: None (occurrence: None)
  Receive Date: 20050315
  Receipt Date: 20050302
  Transmission Date: 20050727
  Serious: Yes (Life-Threatening, Other)
  Sender: FDA-Public Use
  Company Number: 2005-BP-02541BP

PATIENT
  Age: 81 Year
  Sex: Female
  Weight: 60.8 kg

DRUGS (3)
  1. BIBR 1048 (DABIGATRAN ETEXILATE) (PLACEBO) [Suspect]
     Indication: THROMBOSIS PROPHYLAXIS
     Dosage: SEE TEXT (SEE TEXT, CAP + INJ.), SEE TEXT
     Dates: start: 20050215, end: 20050215
  2. ENOXAPARIN [Suspect]
     Indication: THROMBOSIS PROPHYLAXIS
     Dosage: SEE TEXT (SEE TEXT, CAP + INJ), SEE TEXT
     Dates: start: 20050215, end: 20050215
  3. MORPHINE (MOPRHINE) [Suspect]
     Indication: POST PROCEDURAL PAIN
     Dosage: IV
     Route: 042
     Dates: start: 20050214, end: 20050215

REACTIONS (13)
  - AORTIC DILATATION [None]
  - ATRIAL FIBRILLATION [None]
  - HEART RATE IRREGULAR [None]
  - LACUNAR INFARCTION [None]
  - LETHARGY [None]
  - MIOSIS [None]
  - MYOCARDIAL INFARCTION [None]
  - OVERDOSE [None]
  - OXYGEN SATURATION DECREASED [None]
  - PULSE PRESSURE DECREASED [None]
  - REFUSAL OF TREATMENT BY PATIENT [None]
  - SOMNOLENCE [None]
  - VENTRICULAR EXTRASYSTOLES [None]
